FAERS Safety Report 6054392-0 (Version None)
Quarter: 2009Q1

REPORT INFORMATION
  Report Type: 
  Country: None (occurrence: None)
  Receive Date: 20090127
  Receipt Date: 20090119
  Transmission Date: 20090719
  Serious: Yes (Other)
  Sender: FDA-Public Use
  Company Number: CO-B.I. PHARMACEUTICALS,INC./RIDGEFIELD-2008-RA-00086RA

PATIENT
  Sex: Male
  Weight: 84 kg

DRUGS (3)
  1. SECOTEX CAPSULES [Suspect]
     Indication: BENIGN PROSTATIC HYPERPLASIA
     Dosage: .4MG
     Route: 048
     Dates: start: 20080616, end: 20080620
  2. AMLODIPINO (AMLODIPINE) [Concomitant]
     Indication: HYPERTENSION
     Dosage: 10MG
     Route: 048
     Dates: start: 20080501
  3. FENOBARBITAL (FENOBARBITONA) [Concomitant]
     Dosage: 1 TABLET DAILY
     Route: 048
     Dates: start: 20080501

REACTIONS (1)
  - TOXIC SKIN ERUPTION [None]
